FAERS Safety Report 6905903-1 (Version None)
Quarter: 2010Q3

REPORT INFORMATION
  Report Type: 
  Country: None (occurrence: None)
  Receive Date: 20100804
  Receipt Date: 20100727
  Transmission Date: 20110219
  Serious: Yes (Hospitalization)
  Sender: FDA-Public Use
  Company Number: ES-ROCHE-717932

PATIENT
  Age: 38 Year
  Sex: Female

DRUGS (3)
  1. XENICAL [Suspect]
     Indication: OVERWEIGHT
     Route: 048
     Dates: start: 20050101, end: 20050909
  2. XENICAL [Suspect]
     Route: 048
     Dates: start: 20060901
  3. YASMIN [Concomitant]
     Indication: CONTRACEPTION
     Dosage: 1 FIXED DOSE TAKEN DAILY;DRUG:ETHINYL-ESTRADIOL/DROSPIRENONE/YASMIN (LONG TERM)
     Route: 048

REACTIONS (2)
  - ABDOMINAL PAIN UPPER [None]
  - CHOLECYSTITIS ACUTE [None]
